FAERS Safety Report 19391427 (Version 1)
Quarter: 2021Q2

REPORT INFORMATION
  Report Type: Spontaneous
  Country: IN (occurrence: IN)
  Receive Date: 20210608
  Receipt Date: 20210608
  Transmission Date: 20210717
  Serious: Yes (Other)
  Sender: FDA-Public Use
  Company Number: IN-PFIZER INC-2021601849

PATIENT
  Age: 60 Year
  Sex: Female

DRUGS (4)
  1. PALBACE [Suspect]
     Active Substance: PALBOCICLIB
     Indication: BREAST CANCER METASTATIC
     Dosage: 125 MG, CYCLIC (ONCE A DAY, 3 WEEKS ON 1 WEEK OFF)
     Route: 048
     Dates: start: 20210327
  2. LETROZOLE. [Concomitant]
     Active Substance: LETROZOLE
     Dosage: 2.5 MG, 1X/DAY FOR 4 WEEKS
  3. THYRONORM [Concomitant]
     Active Substance: LEVOTHYROXINE
     Dosage: 75 MG, ALTERNATE DAY
  4. THYRONORM [Concomitant]
     Active Substance: LEVOTHYROXINE
     Dosage: 100 MG, ALTERNATE DAY

REACTIONS (2)
  - Hypothyroidism [Unknown]
  - Ejection fraction decreased [Unknown]
